FAERS Safety Report 4556810-3 (Version None)
Quarter: 2005Q1

REPORT INFORMATION
  Report Type: 
  Country: None (occurrence: None)
  Receive Date: 20050120
  Receipt Date: 20050110
  Transmission Date: 20050727
  Serious: Yes (Hospitalization, Other)
  Sender: FDA-Public Use
  Company Number: US-GLAXOSMITHKLINE-A0539961A

PATIENT
  Age: 30 Year
  Sex: Female
  Weight: 68 kg

DRUGS (3)
  1. TUMS LASTING EFFECTS MINT [Suspect]
     Indication: DYSPEPSIA
     Route: 048
     Dates: start: 20040301, end: 20040601
  2. TUMS [Suspect]
     Indication: DYSPEPSIA
     Route: 048
     Dates: start: 20040301, end: 20040601
  3. VITAMIN AND MINERAL PRENATAL SUPPLEMENT W/ FOLIC ACID CAP [Concomitant]
     Indication: VITAMIN SUPPLEMENTATION
     Route: 048

REACTIONS (6)
  - CAESAREAN SECTION [None]
  - DRUG EXPOSURE DURING PREGNANCY [None]
  - DRUG INEFFECTIVE [None]
  - FAILED INDUCTION OF LABOUR [None]
  - HAEMATOTOXICITY [None]
  - PRE-ECLAMPSIA [None]
